FAERS Safety Report 10467706 (Version 4)
Quarter: 2015Q4

REPORT INFORMATION
  Report Type: Spontaneous
  Country: US (occurrence: US)
  Receive Date: 20140922
  Receipt Date: 20151207
  Transmission Date: 20160304
  Serious: Yes (Hospitalization, Other)
  Sender: FDA-Public Use
  Company Number: US-BAYER-2014-140762

PATIENT
  Age: 22 Year
  Sex: Female
  Weight: 52.15 kg

DRUGS (5)
  1. FERROUS SULFATE [Concomitant]
     Active Substance: FERROUS SULFATE\FERROUS SULFATE, DRIED
     Indication: ANAEMIA
     Dosage: UNK
     Dates: start: 200905, end: 201405
  2. VICODIN [Concomitant]
     Active Substance: ACETAMINOPHEN\HYDROCODONE BITARTRATE
     Indication: PAIN
  3. TORADOL [Concomitant]
     Active Substance: KETOROLAC TROMETHAMINE
  4. MIRENA [Suspect]
     Active Substance: LEVONORGESTREL
     Indication: CONTRACEPTION
     Dosage: 20 MCG/24HR, CONT
     Route: 015
     Dates: start: 20100803, end: 20120628
  5. IBUPROFEN. [Concomitant]
     Active Substance: IBUPROFEN

REACTIONS (16)
  - Uterine perforation [None]
  - Abdominal pain [None]
  - Genital haemorrhage [None]
  - Emotional distress [None]
  - General physical health deterioration [None]
  - Drug ineffective [None]
  - Injury [None]
  - Anxiety [None]
  - Depressed mood [None]
  - Depression [None]
  - Pelvic pain [None]
  - Pregnancy with contraceptive device [None]
  - Device dislocation [None]
  - Discomfort [None]
  - Internal injury [None]
  - Fear [None]

NARRATIVE: CASE EVENT DATE: 201109
